FAERS Safety Report 7034133-0 (Version None)
Quarter: 2010Q4

REPORT INFORMATION
  Report Type: 
  Country: None (occurrence: None)
  Receive Date: 20101008
  Receipt Date: 20100920
  Transmission Date: 20110411
  Serious: Yes (Other)
  Sender: FDA-Public Use
  Company Number: US-BAYER-201016118NA

PATIENT
  Age: 19 Year
  Sex: Female

DRUGS (2)
  1. YAZ [Suspect]
     Indication: ACNE
     Route: 048
  2. YASMIN [Suspect]
     Indication: ACNE
     Route: 048

REACTIONS (7)
  - ABDOMINAL PAIN UPPER [None]
  - CHOLECYSTECTOMY [None]
  - CHOLELITHIASIS [None]
  - NAUSEA [None]
  - PAIN [None]
  - PLEURITIC PAIN [None]
  - VOMITING [None]
